FAERS Safety Report 5809203-2 (Version None)
Quarter: 2008Q3

REPORT INFORMATION
  Report Type: 
  Country: None (occurrence: None)
  Receive Date: 20080714
  Receipt Date: 20080707
  Transmission Date: 20090109
  Serious: Yes (Hospitalization)
  Sender: FDA-Public Use
  Company Number: ES-AMGEN-UK292469

PATIENT
  Age: 55 Year
  Sex: Female

DRUGS (6)
  1. NEUPOGEN [Suspect]
     Indication: DRUG USE FOR UNKNOWN INDICATION
     Route: 058
     Dates: start: 20080414, end: 20080414
  2. PANTROPAZOLE [Concomitant]
     Route: 065
  3. CARBOPLATIN [Concomitant]
     Route: 065
  4. FENTANYL [Concomitant]
     Route: 065
  5. BROMAZEPAM [Concomitant]
     Route: 065
  6. PACLITAXEL [Concomitant]
     Route: 065

REACTIONS (3)
  - ACUTE FEBRILE NEUTROPHILIC DERMATOSIS [None]
  - PYREXIA [None]
  - RASH [None]
